FAERS Safety Report 8575887-1 (Version None)
Quarter: 2012Q3

REPORT INFORMATION
  Report Type: 
  Country: None (occurrence: None)
  Receive Date: 20120807
  Receipt Date: 20120727
  Transmission Date: 20120928
  Serious: Yes (Hospitalization)
  Sender: FDA-Public Use
  Company Number: US-BAYER-2012-076575

PATIENT
  Age: 39 Year
  Sex: Female
  Weight: 103 kg

DRUGS (2)
  1. YAZ [Suspect]
  2. IRON [Concomitant]
     Dosage: UNK UNK, BID

REACTIONS (2)
  - PULMONARY EMBOLISM [None]
  - DEEP VEIN THROMBOSIS [None]
